FAERS Safety Report 6696449-7 (Version None)
Quarter: 2010Q2

REPORT INFORMATION
  Report Type: 
  Country: None (occurrence: None)
  Receive Date: 20100421
  Receipt Date: 20100406
  Transmission Date: 20101027
  Serious: Yes (Disabling)
  Sender: FDA-Public Use
  Company Number: TUK2010A00051

PATIENT
  Age: 54 Year
  Sex: Male

DRUGS (8)
  1. ACTOS [Suspect]
     Indication: DIABETES MELLITUS
     Dosage: 15 MG (15 MG), ORAL
     Route: 048
     Dates: start: 20100317, end: 20100319
  2. ASPIRIN [Concomitant]
  3. ATORVASTATIN CALCIUM [Concomitant]
  4. GLUCOPHAGE SR (METFORMIN HYDROCHLORIDE) [Concomitant]
  5. TRBESARTAN (IRBESARTAN) [Concomitant]
  6. ACETAMINOPHEN [Concomitant]
  7. SITAGLIPTIN [Concomitant]
  8. TADALAFIL (TADALAFIL) [Concomitant]

REACTIONS (7)
  - ARTHRALGIA [None]
  - DEAFNESS UNILATERAL [None]
  - EYELID OEDEMA [None]
  - FATIGUE [None]
  - HEADACHE [None]
  - TINNITUS [None]
  - VERTIGO [None]
